FAERS Safety Report 23198725 (Version 1)
Quarter: 2023Q4

REPORT INFORMATION
  Report Type: Spontaneous
  Country: US (occurrence: US)
  Receive Date: 20231117
  Receipt Date: 20231117
  Transmission Date: 20240109
  Serious: Yes (Other)
  Sender: FDA-Public Use
  Company Number: US-PFIZER INC-202300372603

PATIENT
  Age: 66 Year
  Sex: Female

DRUGS (2)
  1. NURTEC ODT [Suspect]
     Active Substance: RIMEGEPANT SULFATE
     Indication: Migraine
     Dosage: UNK, AS NEEDED
  2. NURTEC ODT [Suspect]
     Active Substance: RIMEGEPANT SULFATE
     Dosage: UNK, ALTERNATE DAY

REACTIONS (1)
  - Spinal operation [Unknown]
